FAERS Safety Report 8465152-5 (Version None)
Quarter: 2012Q2

REPORT INFORMATION
  Report Type: 
  Country: None (occurrence: None)
  Receive Date: 20120626
  Receipt Date: 20120620
  Transmission Date: 20120825
  Serious: Yes (Other)
  Sender: FDA-Public Use
  Company Number: US-PFIZER INC-2012149153

PATIENT
  Sex: Female
  Weight: 59 kg

DRUGS (8)
  1. ESTRADIOL [Concomitant]
     Dosage: UNK
  2. FISH OIL [Concomitant]
     Dosage: UNK
  3. MELATONIN [Concomitant]
     Dosage: UNK
  4. BUSPAR [Concomitant]
     Dosage: UNK
  5. LYRICA [Suspect]
     Indication: BACK PAIN
     Dosage: UNK
  6. TEMAZEPAM [Concomitant]
     Dosage: UNK
  7. LYRICA [Suspect]
     Indication: PAIN
  8. LORAZEPAM [Concomitant]
     Dosage: UNK

REACTIONS (4)
  - INSOMNIA [None]
  - SNORING [None]
  - VENTRICULAR EXTRASYSTOLES [None]
  - SLEEP APNOEA SYNDROME [None]
